APPROVED DRUG PRODUCT: MINOXIDIL (FOR MEN)
Active Ingredient: MINOXIDIL
Strength: 2%
Dosage Form/Route: SOLUTION;TOPICAL
Application: A075357 | Product #001
Applicant: L PERRIGO CO
Approved: Jul 30, 1999 | RLD: No | RS: No | Type: OTC